FAERS Safety Report 8445295-2 (Version None)
Quarter: 2012Q2

REPORT INFORMATION
  Report Type: 
  Country: None (occurrence: None)
  Receive Date: 20120618
  Receipt Date: 20120608
  Transmission Date: 20120825
  Serious: Yes (Hospitalization, Other)
  Sender: FDA-Public Use
  Company Number: US-ASTRAZENECA-2012SE38475

PATIENT
  Age: 63 Year

DRUGS (3)
  1. LISINOPRIL [Interacting]
     Route: 048
  2. NAPROXEN [Interacting]
     Route: 065
  3. ZOMIG [Suspect]
     Route: 048

REACTIONS (5)
  - DRUG INTERACTION [None]
  - BLOOD CHOLESTEROL INCREASED [None]
  - BLOOD PRESSURE INCREASED [None]
  - TRANSIENT ISCHAEMIC ATTACK [None]
  - JOINT SWELLING [None]
